FAERS Safety Report 9381520 (Version 1)
Quarter: 2013Q3

REPORT INFORMATION
  Report Type: Spontaneous
  Country: US (occurrence: US)
  Receive Date: 20130703
  Receipt Date: 20130703
  Transmission Date: 20140515
  Serious: Yes (Other)
  Sender: FDA-Public Use
  Company Number: US-US-EMD SERONO, INC.-7001729

PATIENT
  Sex: Female

DRUGS (3)
  1. GONAL-F [Suspect]
     Indication: INFERTILITY
     Dates: start: 20091026
  2. OVIDREL [Suspect]
     Indication: OVARIAN HYPERSTIMULATION SYNDROME
  3. MENOPUR [Suspect]
     Indication: INFERTILITY

REACTIONS (1)
  - Abortion spontaneous [Recovered/Resolved]
